FAERS Safety Report 4975093-3 (Version None)
Quarter: 2006Q2

REPORT INFORMATION
  Report Type: 
  Country: None (occurrence: None)
  Receive Date: 20060411
  Receipt Date: 20060330
  Transmission Date: 20061013
  Serious: Yes (Hospitalization)
  Sender: FDA-Public Use
  Company Number: FR-2006-007149

PATIENT
  Age: 42 Year
  Sex: Female

DRUGS (1)
  1. BETAFERON(INTERFERON BETA - 1B) INJECTION, 250UG [Suspect]
     Indication: MULTIPLE SCLEROSIS
     Dosage: 250 UG/DAY, EVERY 2D, SUBCUTANEOUS
     Route: 058
     Dates: start: 20000115, end: 20051207

REACTIONS (15)
  - BLOOD CREATININE INCREASED [None]
  - CEREBELLAR SYNDROME [None]
  - CONDITION AGGRAVATED [None]
  - DIFFICULTY IN WALKING [None]
  - DYSURIA [None]
  - HAEMOLYTIC ANAEMIA [None]
  - HYPOAESTHESIA [None]
  - MICTURITION URGENCY [None]
  - NERVOUS SYSTEM DISORDER [None]
  - OEDEMA [None]
  - PARAESTHESIA [None]
  - RENAL FAILURE [None]
  - TENDERNESS [None]
  - THROMBOTIC THROMBOCYTOPENIC PURPURA [None]
  - URINARY TRACT INFECTION ENTEROCOCCAL [None]
